FAERS Safety Report 17798145 (Version 1)
Quarter: 2020Q2

REPORT INFORMATION
  Report Type: Spontaneous
  Country: US (occurrence: US)
  Receive Date: 20200517
  Receipt Date: 20200517
  Transmission Date: 20200714
  Serious: Yes (Life-Threatening, Other)
  Sender: FDA-Public Use
  Company Number: None

PATIENT
  Age: 60 Year
  Sex: Male
  Weight: 143.1 kg

DRUGS (1)
  1. PRECEDEX [Suspect]
     Active Substance: DEXMEDETOMIDINE HYDROCHLORIDE
     Indication: AGITATION
     Dosage: ?          OTHER FREQUENCY:CONTINUOUS INF.;?
     Route: 041
     Dates: start: 20200506, end: 20200517

REACTIONS (4)
  - Product substitution issue [None]
  - Dysarthria [None]
  - Blood pressure decreased [None]
  - Lethargy [None]

NARRATIVE: CASE EVENT DATE: 20200517
